FAERS Safety Report 6504723-X (Version None)
Quarter: 2009Q4

REPORT INFORMATION
  Report Type: 
  Country: None (occurrence: None)
  Receive Date: 20091218
  Receipt Date: 20090421
  Transmission Date: 20100525
  Serious: No
  Sender: FDA-Public Use
  Company Number: A0779932A

PATIENT
  Age: 47 Year
  Sex: Female

DRUGS (2)
  1. TRIZIVIR [Suspect]
     Indication: HIV INFECTION
     Dosage: 1TAB TWICE PER DAY
     Route: 048
     Dates: start: 19790101
  2. ENALAPRIL [Concomitant]

REACTIONS (2)
  - FAT TISSUE INCREASED [None]
  - WEIGHT INCREASED [None]
